FAERS Safety Report 8021773-5 (Version None)
Quarter: 2012Q1

REPORT INFORMATION
  Report Type: 
  Country: None (occurrence: None)
  Receive Date: 20120104
  Receipt Date: 20111228
  Transmission Date: 20120608
  Serious: Yes (Life-Threatening, Congenital Anomaly)
  Sender: FDA-Public Use
  Company Number: US-JNJFOC-20111107905

PATIENT
  Sex: Male

DRUGS (4)
  1. FLEXERIL [Suspect]
     Indication: FOETAL EXPOSURE DURING PREGNANCY
     Route: 064
  2. NITROFURANTOIN [Suspect]
     Indication: FOETAL EXPOSURE DURING PREGNANCY
     Route: 064
  3. TOPAMAX [Suspect]
     Indication: FOETAL EXPOSURE DURING PREGNANCY
     Route: 064
     Dates: end: 20101101
  4. MULTI-VITAMINS [Suspect]
     Indication: FOETAL EXPOSURE DURING PREGNANCY
     Route: 064

REACTIONS (9)
  - BODY DYSMORPHIC DISORDER [None]
  - RESPIRATORY DISORDER [None]
  - DEAFNESS [None]
  - HYPERBILIRUBINAEMIA [None]
  - PIERRE ROBIN SYNDROME [None]
  - CLEFT PALATE [None]
  - DEVELOPMENTAL DELAY [None]
  - GLAUCOMA [None]
  - CRANIOSYNOSTOSIS [None]
